FAERS Safety Report 19426712 (Version 1)
Quarter: 2021Q2

REPORT INFORMATION
  Report Type: Spontaneous
  Country: GB (occurrence: GB)
  Receive Date: 20210617
  Receipt Date: 20210617
  Transmission Date: 20210717
  Serious: Yes (Disabling, Other)
  Sender: FDA-Public Use
  Company Number: GB-B.I. PHARMACEUTICALS,INC./RIDGEFIELD-2021-BI-108527

PATIENT
  Age: 64 Year
  Sex: Male
  Weight: 64 kg

DRUGS (2)
  1. CODEINE HYDROCHLORIDE [Concomitant]
     Active Substance: CODEINE HYDROCHLORIDE
     Indication: ILL-DEFINED DISORDER
     Route: 065
  2. OFEV [Suspect]
     Active Substance: NINTEDANIB
     Indication: IDIOPATHIC PULMONARY FIBROSIS
     Dosage: 150MG BD
     Route: 048
     Dates: start: 202008, end: 20210606

REACTIONS (1)
  - Hepatic cirrhosis [Not Recovered/Not Resolved]

NARRATIVE: CASE EVENT DATE: 20210606
